FAERS Safety Report 8354144-2 (Version None)
Quarter: 2012Q2

REPORT INFORMATION
  Report Type: 
  Country: None (occurrence: None)
  Receive Date: 20120511
  Receipt Date: 20120508
  Transmission Date: 20120825
  Serious: Yes (Other)
  Sender: FDA-Public Use
  Company Number: US-PFIZER INC-2012089157

PATIENT
  Sex: Female
  Weight: 125.17 kg

DRUGS (6)
  1. NORCO [Suspect]
     Dosage: 10/325 MG, UNK
  2. LYRICA [Suspect]
     Indication: NEURALGIA
     Dosage: UNK
     Route: 048
  3. XANAX [Suspect]
     Dosage: UNK
  4. DURAGESIC-100 [Suspect]
     Dosage: UNK
  5. LYRICA [Suspect]
     Indication: HYPOAESTHESIA
  6. TOPAMAX [Suspect]
     Dosage: UNK

REACTIONS (8)
  - PANIC ATTACK [None]
  - WITHDRAWAL SYNDROME [None]
  - OEDEMA PERIPHERAL [None]
  - BACK DISORDER [None]
  - HUNGER [None]
  - WEIGHT INCREASED [None]
  - OBESITY [None]
  - ANXIETY [None]
